FAERS Safety Report 18021757 (Version 2)
Quarter: 2020Q3

REPORT INFORMATION
  Report Type: Spontaneous
  Country: US (occurrence: US)
  Receive Date: 20200714
  Receipt Date: 20200724
  Transmission Date: 20201103
  Serious: Yes (Hospitalization, Other)
  Sender: FDA-Public Use
  Company Number: US-JNJFOC-20200705131

PATIENT
  Age: 74 Year
  Sex: Male
  Weight: 82 kg

DRUGS (12)
  1. LUPRON DEPOT [Concomitant]
     Active Substance: LEUPROLIDE ACETATE
  2. CARVEDILOL. [Concomitant]
     Active Substance: CARVEDILOL
  3. LIPITOR [Concomitant]
     Active Substance: ATORVASTATIN CALCIUM
  4. ZYTIGA [Suspect]
     Active Substance: ABIRATERONE ACETATE
     Indication: HORMONE-REFRACTORY PROSTATE CANCER
     Route: 065
     Dates: start: 201606
  5. LOSARTAN. [Concomitant]
     Active Substance: LOSARTAN
  6. PRASUGREL. [Concomitant]
     Active Substance: PRASUGREL
  7. XTANDI [Suspect]
     Active Substance: ENZALUTAMIDE
     Indication: HORMONE-REFRACTORY PROSTATE CANCER
     Route: 048
     Dates: start: 201606
  8. PREDNISONE. [Suspect]
     Active Substance: PREDNISONE
     Indication: HORMONE-REFRACTORY PROSTATE CANCER
     Route: 065
     Dates: start: 201606
  9. CALCIUM D3 [Concomitant]
     Active Substance: CALCIUM\CHOLECALCIFEROL
  10. ASPIRIN                            /00002701/ [Concomitant]
     Active Substance: ASPIRIN
  11. CALCIUM [Concomitant]
     Active Substance: CALCIUM
  12. XGEVA [Concomitant]
     Active Substance: DENOSUMAB

REACTIONS (6)
  - Spinal fracture [Unknown]
  - Back pain [Unknown]
  - Spinal cord injury [Recovering/Resolving]
  - Cardiac failure [Unknown]
  - Accident [Unknown]
  - Retinopathy [Unknown]

NARRATIVE: CASE EVENT DATE: 20190119
